FAERS Safety Report 24357226 (Version 1)
Quarter: 2024Q3

REPORT INFORMATION
  Report Type: Spontaneous
  Country: US (occurrence: US)
  Receive Date: 20240924
  Receipt Date: 20240924
  Transmission Date: 20241016
  Serious: No
  Sender: CELLTRION
  Company Number: US-CELLTRION INC.-2023US017375

PATIENT

DRUGS (15)
  1. INFLECTRA [Suspect]
     Active Substance: INFLIXIMAB-DYYB
     Indication: Product used for unknown indication
     Dosage: INFLECTRA INJ 100MG 20ML VIAL
     Route: 065
  2. INFLECTRA [Suspect]
     Active Substance: INFLIXIMAB-DYYB
     Dosage: INFLECTRA INJ 100MG 20ML VIAL
     Route: 065
  3. CORTEF [Concomitant]
     Active Substance: HYDROCORTISONE
     Route: 065
  4. FLUDROCORTISONE [Concomitant]
     Active Substance: FLUDROCORTISONE
     Route: 065
  5. PRASTERONE [Concomitant]
     Active Substance: PRASTERONE
     Route: 065
  6. SYNTHROID [Concomitant]
     Active Substance: LEVOTHYROXINE SODIUM
     Route: 065
  7. ESTRADIOL [Concomitant]
     Active Substance: ESTRADIOL
     Route: 065
  8. FOLIC ACID [Concomitant]
     Active Substance: FOLIC ACID
     Route: 065
  9. ANASTROZOLE [Concomitant]
     Active Substance: ANASTROZOLE
     Route: 065
  10. ALIGN [Concomitant]
     Active Substance: BIFIDOBACTERIUM LONGUM SUBSP. INFANTIS
     Route: 065
  11. HYOSCYAMINE [Concomitant]
     Active Substance: HYOSCYAMINE
     Route: 065
  12. GABAPENTIN [Concomitant]
     Active Substance: GABAPENTIN
     Route: 065
  13. SERTRALINE [Concomitant]
     Active Substance: SERTRALINE HYDROCHLORIDE
     Route: 065
  14. IMURAN [Concomitant]
     Active Substance: AZATHIOPRINE
     Route: 065
  15. XIIDRA [Concomitant]
     Active Substance: LIFITEGRAST
     Route: 065

REACTIONS (3)
  - Therapy interrupted [Unknown]
  - Product packaging issue [Unknown]
  - Intercepted medication error [Unknown]
